FAERS Safety Report 11718104 (Version 1)
Quarter: 2015Q4

REPORT INFORMATION
  Report Type: Report from Study
  Country: PR (occurrence: PR)
  Receive Date: 20151110
  Receipt Date: 20151110
  Transmission Date: 20160304
  Serious: Yes (Other)
  Sender: FDA-Public Use
  Company Number: PR-ABBVIE-15K-131-1387738-00

PATIENT
  Age: 76 Year
  Sex: Female
  Weight: 72.64 kg

DRUGS (3)
  1. PENICILLIN NOS [Concomitant]
     Active Substance: PENICILLIN
     Indication: PRODUCT USED FOR UNKNOWN INDICATION
  2. HUMIRA [Suspect]
     Active Substance: ADALIMUMAB
     Indication: RHEUMATOID ARTHRITIS
     Route: 058
     Dates: start: 2012
  3. BENADRYL [Concomitant]
     Active Substance: DIPHENHYDRAMINE HYDROCHLORIDE
     Indication: HYPERSENSITIVITY

REACTIONS (11)
  - Calcinosis [Recovered/Resolved]
  - Pyrexia [Recovered/Resolved]
  - Fall [Unknown]
  - Upper limb fracture [Recovering/Resolving]
  - Weight decreased [Not Recovered/Not Resolved]
  - Exostosis [Recovered/Resolved]
  - Acne [Not Recovered/Not Resolved]
  - Dermatitis [Not Recovered/Not Resolved]
  - Unevaluable event [Unknown]
  - Tendon rupture [Unknown]
  - Food poisoning [Unknown]

NARRATIVE: CASE EVENT DATE: 201505
